FAERS Safety Report 4852592-6 (Version None)
Quarter: 2005Q4

REPORT INFORMATION
  Report Type: 
  Country: None (occurrence: None)
  Receive Date: 20051213
  Receipt Date: 20051202
  Transmission Date: 20060501
  Serious: Yes (Other)
  Sender: FDA-Public Use
  Company Number: PHBS2005JP17986

PATIENT
  Age: 63 Year
  Sex: Male

DRUGS (4)
  1. DESFERAL [Suspect]
     Indication: HAEMOCHROMATOSIS
     Dosage: 500 MG X 2 DAYS/WK
     Route: 030
     Dates: start: 20051001, end: 20051201
  2. G-CSF [Concomitant]
  3. DIURETICS [Concomitant]
  4. DIGITALIS [Concomitant]

REACTIONS (2)
  - BLINDNESS UNILATERAL [None]
  - EYE MOVEMENT DISORDER [None]
